FAERS Safety Report 11710031 (Version 2)
Quarter: 2015Q4

REPORT INFORMATION
  Report Type: Spontaneous
  Country: US (occurrence: US)
  Receive Date: 20151104
  Receipt Date: 20151110
  Transmission Date: 20160304
  Serious: No
  Sender: FDA-Public Use
  Company Number: US-ELI_LILLY_AND_COMPANY-US201104006751

PATIENT
  Age: 54 Year
  Sex: Female

DRUGS (5)
  1. MERCUROCHROME [Concomitant]
     Active Substance: BENZALKONIUM CHLORIDE
     Indication: NAIL PIGMENTATION
  2. FORTEO [Suspect]
     Active Substance: TERIPARATIDE
     Dosage: 20 UG, QD
     Route: 065
     Dates: start: 20111011
  3. FORTEO [Suspect]
     Active Substance: TERIPARATIDE
     Indication: OSTEOPOROSIS
     Dosage: 20 UG, QD
     Route: 065
     Dates: start: 201102
  4. FORTEO [Suspect]
     Active Substance: TERIPARATIDE
     Dosage: 20 UG, QD
     Route: 065
  5. IODINE [Concomitant]
     Active Substance: IODINE
     Indication: NAIL PIGMENTATION

REACTIONS (2)
  - Nausea [Recovered/Resolved]
  - Onychalgia [Unknown]

NARRATIVE: CASE EVENT DATE: 201104
